FAERS Safety Report 5403248-2 (Version None)
Quarter: 2007Q3

REPORT INFORMATION
  Report Type: 
  Country: None (occurrence: None)
  Receive Date: 20070727
  Receipt Date: 20070712
  Transmission Date: 20080115
  Serious: Yes (Life-Threatening, Hospitalization)
  Sender: FDA-Public Use
  Company Number: 2007EN000189

PATIENT
  Age: 35 Year
  Sex: Male

DRUGS (3)
  1. OPANA ER [Suspect]
     Indication: PAIN
  2. ANTIDEPRESSANTS [Concomitant]
  3. PAIN MEDICATION NOS [Concomitant]

REACTIONS (1)
  - LIVER FUNCTION TEST ABNORMAL [None]
